FAERS Safety Report 4289127-5 (Version None)
Quarter: 2004Q1

REPORT INFORMATION
  Report Type: 
  Country: None (occurrence: None)
  Receive Date: 20040205
  Receipt Date: 20040115
  Transmission Date: 20041129
  Serious: Yes (Hospitalization)
  Sender: FDA-Public Use
  Company Number: WAES 0309USA03039

PATIENT
  Age: 64 Year
  Sex: Male

DRUGS (4)
  1. COZAAR [Suspect]
     Indication: HYPERTENSION
     Dosage: 50 MG
     Route: 048
     Dates: start: 20020413, end: 20020902
  2. CARBAMAZEPINE [Concomitant]
  3. IFENPRODIL TARTRATE [Concomitant]
  4. RANITIDINE HCL [Concomitant]

REACTIONS (1)
  - ANGINA UNSTABLE [None]
